FAERS Safety Report 20180252 (Version 1)
Quarter: 2021Q4

REPORT INFORMATION
  Report Type: Report from Study
  Country: CN (occurrence: CN)
  Receive Date: 20211214
  Receipt Date: 20211214
  Transmission Date: 20220303
  Serious: Yes (Other)
  Sender: FDA-Public Use
  Company Number: CN-NOVARTISPH-NVSC2021CN277309

PATIENT
  Age: 61 Year
  Sex: Male
  Weight: 80 kg

DRUGS (2)
  1. ZYKADIA [Suspect]
     Active Substance: CERITINIB
     Indication: Non-small cell lung cancer
     Dosage: 450 MG/D
     Route: 048
     Dates: start: 20200105
  2. ZYKADIA [Suspect]
     Active Substance: CERITINIB
     Dosage: 300 MG/D
     Route: 048
     Dates: start: 202006, end: 20211201

REACTIONS (9)
  - Central nervous system lesion [Unknown]
  - Metastasis [Unknown]
  - Cerebrovascular disorder [Unknown]
  - Abdominal pain upper [Recovering/Resolving]
  - Gait disturbance [Unknown]
  - Dizziness [Not Recovered/Not Resolved]
  - Nausea [Recovering/Resolving]
  - Asthenia [Unknown]
  - Weight decreased [Unknown]

NARRATIVE: CASE EVENT DATE: 20200105
